FAERS Safety Report 6508828-9 (Version None)
Quarter: 2009Q4

REPORT INFORMATION
  Report Type: 
  Country: None (occurrence: None)
  Receive Date: 20091221
  Receipt Date: 20090826
  Transmission Date: 20100525
  Serious: No
  Sender: FDA-Public Use
  Company Number: US-ASTRAZENECA-2009SE09965

PATIENT
  Age: 25432 Day
  Sex: Female

DRUGS (7)
  1. CRESTOR [Suspect]
     Route: 048
     Dates: start: 20090823
  2. LEXAPRO [Concomitant]
  3. PREVACID [Concomitant]
  4. PREMARIN [Concomitant]
  5. LEVOTHYROXINE SODIUM [Concomitant]
  6. BIPROLOL [Concomitant]
  7. ENALAPRIL [Concomitant]

REACTIONS (1)
  - DIARRHOEA [None]
